FAERS Safety Report 7371444-3 (Version None)
Quarter: 2011Q1

REPORT INFORMATION
  Report Type: 
  Country: None (occurrence: None)
  Receive Date: 20110322
  Receipt Date: 20110322
  Transmission Date: 20110831
  Serious: Yes (Death, Life-Threatening, Hospitalization)
  Sender: FDA-Public Use
  Company Number: None

PATIENT
  Age: 72 Year
  Sex: Female

DRUGS (2)
  1. LOVENOX [Suspect]
     Indication: ATRIAL FIBRILLATION
     Dosage: 60MG Q12H SQ
     Route: 058
     Dates: start: 20110207, end: 20110211
  2. PRADAXA [Suspect]
     Indication: ATRIAL FIBRILLATION
     Dosage: 150MG Q12H PO
     Route: 048
     Dates: start: 20110210, end: 20110212

REACTIONS (5)
  - RETROPERITONEAL HAEMORRHAGE [None]
  - SHOCK HAEMORRHAGIC [None]
  - BRAIN DEATH [None]
  - HAEMODIALYSIS [None]
  - HAEMORRHAGE INTRACRANIAL [None]
